FAERS Safety Report 8903317 (Version 1)
Quarter: 2012Q4

REPORT INFORMATION
  Report Type: 
  Country: SE (occurrence: SE)
  Receive Date: 20121112
  Receipt Date: 20121112
  Transmission Date: 20130627
  Serious: Yes (Hospitalization)
  Sender: FDA-Public Use
  Company Number: SE-B.I. PHARMACEUTICALS,INC./RIDGEFIELD-2012-SW-00825SW

PATIENT
  Age: 66 Year
  Sex: Female

DRUGS (7)
  1. PRADAXA [Suspect]
     Dosage: 220 mg
     Route: 048
     Dates: start: 20120610, end: 20120614
  2. ALVEDON [Concomitant]
     Dosage: Formulation and strength: modified-release tablet 665 mg
  3. OMEPRAZOL SANDOZ [Concomitant]
     Dosage: Formulation and strength: gastro-resistant capsule, hard 20 mg
  4. RAMIPRIL ACTAVIS [Concomitant]
  5. LEVAXIN [Concomitant]
  6. TRADOLAN [Concomitant]
     Dosage: Formulation and strength: solution for injection 50 mg/ml
  7. CILAXORAL [Concomitant]
     Dosage: Formulation and strength: oral drops, solution 7.5 mg/ml

REACTIONS (2)
  - Drug ineffective [Not Recovered/Not Resolved]
  - Venous thrombosis limb [Not Recovered/Not Resolved]
